FAERS Safety Report 9788738 (Version 1)
Quarter: 2013Q4

REPORT INFORMATION
  Report Type: Spontaneous
  Country: US (occurrence: US)
  Receive Date: 20131230
  Receipt Date: 20131230
  Transmission Date: 20140711
  Serious: Yes (Hospitalization)
  Sender: FDA-Public Use
  Company Number: US-UCBSA-106680

PATIENT
  Age: 21 Year
  Sex: Female

DRUGS (8)
  1. VIMPAT [Suspect]
     Indication: CONVULSION
     Dosage: UNKNOWN DOSE
  2. KEPPRA [Suspect]
     Dosage: UNKNOWN DOSE
     Dates: end: 201208
  3. CLONAZEPAM [Suspect]
     Indication: CONVULSION
     Dosage: UNKNOWN DOSE
  4. LAMOTRIGINE [Suspect]
     Indication: EPILEPSY
     Dosage: UNKNOWN DOSE
     Dates: start: 201211
  5. LAMOTRIGINE [Suspect]
     Indication: EPILEPSY
     Dosage: FULL DOSE IN THE MORNING
  6. GENERIC LAMICTAL XR [Suspect]
     Indication: EPILEPSY
     Dosage: 500MG DAILY
     Route: 048
     Dates: start: 201206, end: 201211
  7. PRENATAL VITAMINS [Concomitant]
     Dosage: UNKNOWN DOSE
  8. FOLIC ACID [Concomitant]
     Dosage: UNKNOWN DOSE

REACTIONS (7)
  - Convulsion [Recovered/Resolved]
  - Fall [Recovered/Resolved]
  - Head injury [Recovered/Resolved]
  - Concussion [Recovered/Resolved]
  - Insomnia [Recovered/Resolved]
  - Constipation [Recovered/Resolved]
  - Drug ineffective [Unknown]
